FAERS Safety Report 9734359 (Version 3)
Quarter: 2013Q4

REPORT INFORMATION
  Report Type: Report from Study
  Country: CA (occurrence: CA)
  Receive Date: 20131206
  Receipt Date: 20131206
  Transmission Date: 20140711
  Serious: Yes (Hospitalization, Other)
  Sender: FDA-Public Use
  Company Number: CA-ROCHE-1019877

PATIENT
  Age: 65 Year
  Sex: Female
  Weight: 61.2 kg

DRUGS (13)
  1. RITUXAN [Suspect]
     Indication: RHEUMATOID ARTHRITIS
     Dosage: DAY 1,15
     Route: 042
     Dates: start: 20111115
  2. RITUXAN [Suspect]
     Dosage: DAY 1 AND 15
     Route: 042
     Dates: start: 20120918
  3. METHOTREXATE [Concomitant]
     Route: 048
  4. CIPRALEX [Concomitant]
     Route: 065
  5. NOVO-MIRTAZAPINE [Concomitant]
     Route: 065
  6. DEXILANT [Concomitant]
     Route: 065
  7. ASA [Concomitant]
     Route: 048
  8. APO-HYDRO [Concomitant]
     Dosage: DAILY
     Route: 065
  9. ACETAMINOPHEN [Concomitant]
     Indication: PREMEDICATION
     Route: 048
     Dates: start: 20111115
  10. RANITIDINE [Concomitant]
  11. CLONAZEPAM [Concomitant]
     Route: 065
  12. DIPHENHYDRAMINE HCL [Concomitant]
     Indication: PREMEDICATION
     Route: 048
     Dates: start: 20111115
  13. METHYLPREDNISOLONE [Concomitant]
     Indication: PREMEDICATION
     Route: 042
     Dates: start: 20111115

REACTIONS (6)
  - Chest pain [Recovered/Resolved]
  - Atrial fibrillation [Recovered/Resolved]
  - Lung infection [Unknown]
  - Fatigue [Not Recovered/Not Resolved]
  - Arthralgia [Not Recovered/Not Resolved]
  - Malaise [Unknown]
